FAERS Safety Report 6079926-1 (Version None)
Quarter: 2009Q1

REPORT INFORMATION
  Report Type: 
  Country: None (occurrence: None)
  Receive Date: 20090217
  Receipt Date: 20090205
  Transmission Date: 20090719
  Serious: Yes (Death, Hospitalization)
  Sender: FDA-Public Use
  Company Number: PH-PFIZER INC-2009157567

PATIENT

DRUGS (2)
  1. NORVASC [Suspect]
     Indication: HYPERTENSION
     Dosage: 10 MG, 1X/DAY
  2. DIOVAN [Concomitant]
     Indication: HYPERTENSION

REACTIONS (3)
  - CARDIAC ARREST [None]
  - DYSPNOEA [None]
  - FEELING COLD [None]
